FAERS Safety Report 8952920 (Version 1)
Quarter: 2012Q4

REPORT INFORMATION
  Report Type: 
  Country: JP (occurrence: JP)
  Receive Date: 20121203
  Receipt Date: 20121203
  Transmission Date: 20130627
  Serious: Yes (Hospitalization)
  Sender: FDA-Public Use
  Company Number: JP-GILEAD-2012-0065394

PATIENT
  Sex: Male

DRUGS (2)
  1. EMTRICITABINE/TENOFOVIR DISOPROXIL FUMARATE [Suspect]
     Indication: ACQUIRED IMMUNODEFICIENCY SYNDROME
     Dosage: UNK
     Route: 048
  2. ISENTRESS [Suspect]
     Indication: ACQUIRED IMMUNODEFICIENCY SYNDROME
     Dosage: UNK
     Route: 048

REACTIONS (11)
  - Herpes zoster oticus [Unknown]
  - VIIth nerve paralysis [Unknown]
  - Immune reconstitution inflammatory syndrome [Unknown]
  - Seborrhoeic dermatitis [Unknown]
  - Pyrexia [None]
  - Diarrhoea [None]
  - Ear pain [None]
  - Dizziness [None]
  - Nausea [None]
  - Vomiting [None]
  - Abasia [None]
